FAERS Safety Report 4355601-6 (Version None)
Quarter: 2004Q2

REPORT INFORMATION
  Report Type: 
  Country: None (occurrence: None)
  Receive Date: 20040510
  Receipt Date: 20040428
  Transmission Date: 20050107
  Serious: Yes (Other)
  Sender: FDA-Public Use
  Company Number: GB-GLAXOSMITHKLINE-B0331906A

PATIENT
  Age: 22 Year
  Sex: Female

DRUGS (4)
  1. MALARONE [Suspect]
     Route: 065
     Dates: start: 20040102
  2. STAMARIL [Concomitant]
     Indication: IMMUNISATION
     Dosage: .5ML SINGLE DOSE
     Route: 030
     Dates: start: 20031219, end: 20031219
  3. AVAXIM [Concomitant]
     Indication: IMMUNISATION
     Dosage: .5ML SINGLE DOSE
     Route: 030
     Dates: start: 20031219, end: 20031219
  4. RUBELLA VACCINE [Concomitant]
     Route: 030
     Dates: start: 20031104, end: 20031104

REACTIONS (3)
  - ABORTION SPONTANEOUS [None]
  - COMPLICATIONS OF MATERNAL EXPOSURE TO THERAPEUTIC DRUGS [None]
  - TREATMENT NONCOMPLIANCE [None]
